FAERS Safety Report 7829607-6 (Version None)
Quarter: 2011Q4

REPORT INFORMATION
  Report Type: 
  Country: None (occurrence: None)
  Receive Date: 20111020
  Receipt Date: 20111013
  Transmission Date: 20120403
  Serious: No
  Sender: FDA-Public Use
  Company Number: US-B.I. PHARMACEUTICALS,INC./RIDGEFIELD-2011-BP-24195BP

PATIENT
  Sex: Female

DRUGS (8)
  1. TRAZODONE HYDROCHLORIDE [Concomitant]
     Indication: DEPRESSION
     Dosage: 100 MG
     Route: 048
  2. ZANTAC 75 [Suspect]
     Indication: DYSPEPSIA
     Dosage: 150 MG
     Route: 048
  3. MONISTAT [Concomitant]
     Indication: VULVOVAGINAL MYCOTIC INFECTION
  4. ZANTAC 75 [Suspect]
  5. LORAZEPAM [Concomitant]
     Indication: ANXIETY
     Dosage: 0.5 MG
     Route: 048
  6. OMEPRAZOLE [Concomitant]
     Indication: GASTROOESOPHAGEAL REFLUX DISEASE
     Dosage: 20 MG
     Route: 048
  7. PROZAC [Concomitant]
     Indication: DEPRESSION
     Dosage: 20 MG
     Route: 048
  8. ALIGN [Concomitant]
     Indication: PROBIOTIC THERAPY

REACTIONS (1)
  - VULVOVAGINAL MYCOTIC INFECTION [None]
